FAERS Safety Report 9817845 (Version 1)
Quarter: 2014Q1

REPORT INFORMATION
  Report Type: Spontaneous
  Country: US (occurrence: None)
  Receive Date: 20140110
  Receipt Date: 20140110
  Transmission Date: 20141002
  Serious: No
  Sender: FDA-Public Use
  Company Number: None

PATIENT
  Age: 60 Year
  Sex: Male

DRUGS (22)
  1. XELJANZ 5 MG PFIZER [Suspect]
     Indication: RHEUMATOID ARTHRITIS
     Route: 048
  2. CARDIZEM [Concomitant]
  3. CIMZIA [Concomitant]
  4. B12 [Concomitant]
  5. CYCLOBENZAPRINE [Concomitant]
  6. CYMBALTA [Concomitant]
  7. EFFIENT [Concomitant]
  8. FOLIC ACID [Concomitant]
  9. HYDROCODONE / GUALFENESIN [Concomitant]
  10. HYZAAR [Concomitant]
  11. JANUVIA [Concomitant]
  12. KRISTALOSE [Suspect]
  13. LOSARTAN [Concomitant]
  14. LYRICA [Concomitant]
  15. METHYLPREDNISOLONE [Concomitant]
  16. MORPHINE SULFATE ER [Concomitant]
  17. NAMBUMETONE [Concomitant]
  18. OMEPRAZOLE [Concomitant]
  19. SYNTHROID [Concomitant]
  20. SIMVASTATIN [Concomitant]
  21. TRAMADOL [Concomitant]
  22. VYTORIN [Concomitant]

REACTIONS (1)
  - Rheumatoid arthritis [None]
